FAERS Safety Report 14115637 (Version 1)
Quarter: 2017Q4

REPORT INFORMATION
  Report Type: Spontaneous
  Country: IT (occurrence: IT)
  Receive Date: 20171023
  Receipt Date: 20171023
  Transmission Date: 20180321
  Serious: Yes (Other)
  Sender: FDA-Public Use
  Company Number: IT-ABBVIE-17P-083-2140130-00

PATIENT
  Age: 52 Year
  Sex: Female

DRUGS (5)
  1. RIVOTRIL [Suspect]
     Active Substance: CLONAZEPAM
     Indication: INSOMNIA
     Dosage: 12 MG (6 TABLETS OF CLONAZEPAM OF 2 MG)
     Route: 048
     Dates: start: 20160309
  2. DEPAKINE [Suspect]
     Active Substance: VALPROATE SODIUM
     Indication: BIPOLAR DISORDER
     Dosage: 4500 MG (6 BAGS OF VALPROATE SODIUM 750 MG)
     Route: 048
     Dates: start: 20160309
  3. LITHIUM CARBONATE. [Concomitant]
     Active Substance: LITHIUM CARBONATE
     Indication: PRODUCT USED FOR UNKNOWN INDICATION
     Dates: start: 20160312
  4. TRITTICO [Concomitant]
     Active Substance: TRAZODONE HYDROCHLORIDE
     Indication: PRODUCT USED FOR UNKNOWN INDICATION
     Dates: start: 20160310
  5. PROZIN (CHLORPROMAZINE HYDROCHLORIDE) [Concomitant]
     Active Substance: CHLORPROMAZINE HYDROCHLORIDE
     Indication: PRODUCT USED FOR UNKNOWN INDICATION
     Dates: start: 20160310

REACTIONS (6)
  - Nausea [Unknown]
  - Headache [Unknown]
  - Syncope [Unknown]
  - Intentional overdose [Unknown]
  - Intentional self-injury [Unknown]
  - Drug use disorder [Unknown]

NARRATIVE: CASE EVENT DATE: 20170921
